FAERS Safety Report 19627057 (Version 1)
Quarter: 2021Q3

REPORT INFORMATION
  Report Type: Spontaneous
  Country: US (occurrence: US)
  Receive Date: 20210728
  Receipt Date: 20210728
  Transmission Date: 20211014
  Serious: No
  Sender: FDA-Public Use
  Company Number: None

PATIENT
  Age: 64 Year
  Sex: Female

DRUGS (1)
  1. OPSUMIT [Suspect]
     Active Substance: MACITENTAN
     Indication: PULMONARY ARTERIAL HYPERTENSION
     Route: 048
     Dates: start: 20170613

REACTIONS (7)
  - Salpingo-oophorectomy [None]
  - Hysterectomy [None]
  - Leiomyosarcoma [None]
  - Vaginal haemorrhage [None]
  - Pelvic mass [None]
  - Uterine leiomyoma [None]
  - Hypotension [None]

NARRATIVE: CASE EVENT DATE: 20210728
